FAERS Safety Report 8454150-3 (Version None)
Quarter: 2012Q2

REPORT INFORMATION
  Report Type: 
  Country: None (occurrence: None)
  Receive Date: 20120620
  Receipt Date: 20120612
  Transmission Date: 20120825
  Serious: Yes (Hospitalization)
  Sender: FDA-Public Use
  Company Number: JP-ABBOTT-12P-087-0945283-00

PATIENT
  Sex: Male

DRUGS (6)
  1. TPN [Concomitant]
     Indication: PRODUCT USED FOR UNKNOWN INDICATION
     Dates: start: 20120305
  2. HUMIRA [Suspect]
     Dates: start: 20120529, end: 20120529
  3. MESALAMINE [Concomitant]
     Indication: PRODUCT USED FOR UNKNOWN INDICATION
     Dates: start: 20120305
  4. HUMIRA [Suspect]
     Indication: CROHN'S DISEASE
     Route: 058
     Dates: start: 20120515, end: 20120515
  5. HUMIRA [Suspect]
  6. CLOSTRIDIUM BUTYRICUM [Concomitant]
     Indication: PRODUCT USED FOR UNKNOWN INDICATION
     Dates: start: 20120305

REACTIONS (2)
  - PYREXIA [None]
  - HAEMATOCHEZIA [None]
